FAERS Safety Report 16909483 (Version 2)
Quarter: 2019Q4

REPORT INFORMATION
  Report Type: Spontaneous
  Country: FR (occurrence: FR)
  Receive Date: 20191011
  Receipt Date: 20191209
  Transmission Date: 20200122
  Serious: Yes (Life-Threatening, Hospitalization, Other)
  Sender: FDA-Public Use
  Company Number: FR-BRISTOL-MYERS SQUIBB COMPANY-BMS-2019-096132

PATIENT
  Age: 38 Year
  Sex: Female
  Weight: 72 kg

DRUGS (3)
  1. HYDREA [Suspect]
     Active Substance: HYDROXYUREA
     Indication: LYMPHANGIOLEIOMYOMATOSIS
     Dosage: UNK, DAILY
     Route: 048
     Dates: start: 20190531, end: 20190531
  2. CYTARABINE. [Suspect]
     Active Substance: CYTARABINE
     Indication: LYMPHANGIOLEIOMYOMATOSIS
     Dosage: 200 MILLIGRAM/SQ. METER
     Route: 041
     Dates: start: 20190531, end: 20190606
  3. IDARUBICINE [Suspect]
     Active Substance: IDARUBICIN
     Indication: LYMPHANGIOLEIOMYOMATOSIS
     Dosage: 9 MILLIGRAM/SQ. METER
     Route: 041
     Dates: start: 20190601, end: 20190605

REACTIONS (3)
  - Capillary leak syndrome [Recovering/Resolving]
  - Multiple organ dysfunction syndrome [Recovering/Resolving]
  - Tumour lysis syndrome [Recovered/Resolved]

NARRATIVE: CASE EVENT DATE: 20190602
